FAERS Safety Report 17583996 (Version 1)
Quarter: 2020Q1

REPORT INFORMATION
  Report Type: Spontaneous
  Country: GB (occurrence: GB)
  Receive Date: 20200326
  Receipt Date: 20200326
  Transmission Date: 20200409
  Serious: Yes (Hospitalization)
  Sender: FDA-Public Use
  Company Number: GB-AMGEN-GBRSP2020047816

PATIENT
  Age: 59 Year
  Sex: Female
  Weight: 100 kg

DRUGS (6)
  1. AMGEVITA [Suspect]
     Active Substance: ADALIMUMAB
     Indication: PSORIASIS
     Dosage: 80 MILLIGRAM
     Route: 058
     Dates: start: 20200117
  2. OMEPRAZOLE. [Concomitant]
     Active Substance: OMEPRAZOLE
     Dosage: UNK
  3. THYROXINE [Concomitant]
     Active Substance: LEVOTHYROXINE
     Dosage: UNK
  4. PREGABALIN. [Concomitant]
     Active Substance: PREGABALIN
     Dosage: UNK
  5. AMGEVITA [Suspect]
     Active Substance: ADALIMUMAB
     Dosage: 40 MILLIGRAM
     Route: 058
     Dates: start: 20200124, end: 20200207
  6. CODEINE [Concomitant]
     Active Substance: CODEINE
     Dosage: UNK

REACTIONS (3)
  - Malaise [Unknown]
  - Psoriasis [Recovering/Resolving]
  - Dermatitis exfoliative generalised [Recovering/Resolving]

NARRATIVE: CASE EVENT DATE: 20200131
